FAERS Safety Report 4385492-9 (Version None)
Quarter: 2004Q2

REPORT INFORMATION
  Report Type: 
  Country: None (occurrence: None)
  Receive Date: 20040622
  Receipt Date: 20040607
  Transmission Date: 20050107
  Serious: Yes (Hospitalization)
  Sender: FDA-Public Use
  Company Number: 2004-BP-02459NB

PATIENT
  Age: 85 Year
  Sex: Female

DRUGS (2)
  1. MOBIC [Suspect]
     Indication: BACK PAIN
     Route: 048
     Dates: start: 20040105, end: 20040316
  2. ASPIRIN [Suspect]
     Route: 048
     Dates: start: 20040105

REACTIONS (3)
  - GASTRIC ULCER [None]
  - GASTROINTESTINAL CANDIDIASIS [None]
  - OEDEMA PERIPHERAL [None]
